FAERS Safety Report 5707120-X (Version None)
Quarter: 2008Q2

REPORT INFORMATION
  Report Type: 
  Country: None (occurrence: None)
  Receive Date: 20080416
  Receipt Date: 20080407
  Transmission Date: 20081010
  Serious: Yes (Other)
  Sender: FDA-Public Use
  Company Number: CA-BAYER-200716776GDS

PATIENT
  Age: 42 Year
  Sex: Male
  Weight: 75 kg

DRUGS (8)
  1. ASPIRIN [Suspect]
     Indication: MYOCARDIAL INFARCTION
     Route: 048
     Dates: start: 20071014, end: 20071014
  2. ASPIRIN [Suspect]
     Dosage: TOTAL DAILY DOSE: 81 MG  UNIT DOSE: 81 MG
     Route: 048
     Dates: start: 20071015, end: 20071015
  3. LOVENOX [Suspect]
     Indication: MYOCARDIAL INFARCTION
     Route: 042
     Dates: start: 20071014, end: 20071014
  4. LOVENOX [Suspect]
     Route: 058
     Dates: start: 20071014, end: 20071014
  5. LOVENOX [Suspect]
     Dosage: TOTAL DAILY DOSE: 150 MG
     Route: 058
     Dates: start: 20071015, end: 20071015
  6. PLAVIX [Suspect]
     Indication: ACUTE MYOCARDIAL INFARCTION
     Dosage: TOTAL DAILY DOSE: 300 MG
     Route: 048
     Dates: start: 20071014, end: 20071014
  7. PLAVIX [Suspect]
     Dosage: TOTAL DAILY DOSE: 75 MG
     Route: 048
     Dates: start: 20071015, end: 20071015
  8. TNKASE [Suspect]
     Indication: ACUTE MYOCARDIAL INFARCTION
     Dosage: TOTAL DAILY DOSE: 40 MG  UNIT DOSE: 5 MG/ML
     Route: 042
     Dates: start: 20071014, end: 20071014

REACTIONS (7)
  - AGNOSIA [None]
  - APHASIA [None]
  - ASTHENIA [None]
  - DYSARTHRIA [None]
  - HAEMORRHAGIC STROKE [None]
  - HEMIPARESIS [None]
  - HYPOAESTHESIA [None]
